FAERS Safety Report 16191513 (Version 1)
Quarter: 2019Q2

REPORT INFORMATION
  Report Type: Spontaneous
  Country: US (occurrence: US)
  Receive Date: 20190412
  Receipt Date: 20190412
  Transmission Date: 20190711
  Serious: No
  Sender: FDA-Public Use
  Company Number: US-ASTRAZENECA-2019SE43647

PATIENT
  Age: 29268 Day
  Sex: Female
  Weight: 45.4 kg

DRUGS (2)
  1. TUDORZA PRESSAIR [Suspect]
     Active Substance: ACLIDINIUM BROMIDE
     Indication: CHRONIC OBSTRUCTIVE PULMONARY DISEASE
     Dosage: 1 PUFF TWICE A DAY
     Route: 055
     Dates: start: 2016
  2. TUDORZA PRESSAIR [Suspect]
     Active Substance: ACLIDINIUM BROMIDE
     Indication: EMPHYSEMA
     Dosage: 1 PUFF TWICE A DAY
     Route: 055
     Dates: start: 2016

REACTIONS (4)
  - Device failure [Unknown]
  - Hypersensitivity [Unknown]
  - Device issue [Unknown]
  - Aphonia [Unknown]

NARRATIVE: CASE EVENT DATE: 20190314
